FAERS Safety Report 9153810 (Version 2)
Quarter: 2013Q2

REPORT INFORMATION
  Report Type: Spontaneous
  Country: FR (occurrence: FR)
  Receive Date: 20130311
  Receipt Date: 20130404
  Transmission Date: 20140414
  Serious: Yes (Hospitalization)
  Sender: FDA-Public Use
  Company Number: FR-US-EMD SERONO, INC.-7190500

PATIENT
  Age: 20 Year
  Sex: Female

DRUGS (7)
  1. REBIF [Suspect]
     Indication: MULTIPLE SCLEROSIS
     Route: 058
     Dates: start: 20130110, end: 20130125
  2. REBIF [Suspect]
     Route: 058
     Dates: start: 20130125, end: 20130208
  3. REBIF [Suspect]
     Route: 058
     Dates: start: 20130209, end: 20130226
  4. REBIF [Suspect]
     Route: 058
     Dates: start: 20130227, end: 20130301
  5. REBIF [Suspect]
     Route: 058
     Dates: start: 20130317
  6. INEXIUM [Suspect]
     Indication: PRODUCT USED FOR UNKNOWN INDICATION
  7. CONTRACEPTIVE PILL [Concomitant]
     Indication: CONTRACEPTION
     Route: 048

REACTIONS (10)
  - Visual impairment [Unknown]
  - Optic neuritis [Unknown]
  - Dermatitis contact [Unknown]
  - Vomiting [Recovered/Resolved]
  - Influenza [Unknown]
  - Burning sensation [Unknown]
  - Gait disturbance [Unknown]
  - Dysphemia [Unknown]
  - Injection site haemorrhage [Unknown]
  - Injection site pain [Unknown]
